FAERS Safety Report 12094730 (Version 3)
Quarter: 2017Q2

REPORT INFORMATION
  Report Type: Spontaneous
  Country: US (occurrence: US)
  Receive Date: 20160219
  Receipt Date: 20170606
  Transmission Date: 20170829
  Serious: Yes (Other)
  Sender: FDA-Public Use
  Company Number: US-JNJFOC-20160212768

PATIENT
  Age: 70 Year
  Sex: Male
  Weight: 87.09 kg

DRUGS (4)
  1. METOPROLOL. [Concomitant]
     Active Substance: METOPROLOL
     Indication: CARDIAC DISORDER
     Route: 065
  2. XARELTO [Suspect]
     Active Substance: RIVAROXABAN
     Indication: THROMBOSIS
     Route: 048
     Dates: start: 201509, end: 201603
  3. SERTRALINE [Concomitant]
     Active Substance: SERTRALINE HYDROCHLORIDE
     Route: 065
  4. FLUOXETINE [Concomitant]
     Active Substance: FLUOXETINE HYDROCHLORIDE
     Indication: DEPRESSION
     Route: 065

REACTIONS (10)
  - Limb injury [Not Recovered/Not Resolved]
  - Mitral valve prolapse [Unknown]
  - Mouth cyst [Not Recovered/Not Resolved]
  - Tremor [Not Recovered/Not Resolved]
  - Blister [Not Recovered/Not Resolved]
  - Cyst [Not Recovered/Not Resolved]
  - Blister [Not Recovered/Not Resolved]
  - Blister [Not Recovered/Not Resolved]
  - Tongue haemorrhage [Recovered/Resolved]
  - Unevaluable event [Unknown]

NARRATIVE: CASE EVENT DATE: 2015
